FAERS Safety Report 7693394-5 (Version None)
Quarter: 2011Q3

REPORT INFORMATION
  Report Type: 
  Country: None (occurrence: None)
  Receive Date: 20110819
  Receipt Date: 20110815
  Transmission Date: 20111222
  Serious: Yes (Hospitalization)
  Sender: FDA-Public Use
  Company Number: SE-SANOFI-AVENTIS-2011SA011222

PATIENT
  Age: 54 Year
  Sex: Female

DRUGS (8)
  1. SIMVASTATIN [Concomitant]
     Route: 065
     Dates: start: 20110218, end: 20110218
  2. ZOLPIDEM TARTRATE [Suspect]
     Dosage: 0.5 TABLET.
     Route: 048
     Dates: start: 20110213, end: 20110213
  3. ZOLPIDEM TARTRATE [Suspect]
     Dosage: 0.5 TABLET.
     Route: 048
     Dates: start: 20110214, end: 20110215
  4. OMEPRAZOLE [Concomitant]
     Route: 065
  5. ACETAMINOPHEN [Concomitant]
     Route: 065
  6. ZOLPIDEM TARTRATE [Suspect]
     Dosage: 0.5 TABLET.
     Route: 048
     Dates: start: 20110220, end: 20110220
  7. VITAMIN D [Concomitant]
     Route: 065
  8. ASPIRIN [Concomitant]
     Route: 065
     Dates: start: 20110218, end: 20110218

REACTIONS (7)
  - DYSARTHRIA [None]
  - CONFUSIONAL STATE [None]
  - HYPOAESTHESIA [None]
  - HEADACHE [None]
  - PAIN [None]
  - AMNESIA [None]
  - DIZZINESS [None]
